FAERS Safety Report 5304407-X (Version None)
Quarter: 2007Q2

REPORT INFORMATION
  Report Type: 
  Country: None (occurrence: None)
  Receive Date: 20070423
  Receipt Date: 20070412
  Transmission Date: 20071010
  Serious: Yes (Other)
  Sender: FDA-Public Use
  Company Number: US-ROCHE-425888

PATIENT
  Age: 54 Year
  Sex: Female

DRUGS (2)
  1. PEGASYS [Suspect]
     Dosage: ROUTE REPORTED AS INJECTABLE.
     Route: 050
     Dates: start: 20050424, end: 20060615
  2. COPEGUS [Suspect]
     Route: 048
     Dates: start: 20050424, end: 20060615

REACTIONS (9)
  - ANGER [None]
  - CATARACT [None]
  - CHROMATURIA [None]
  - DEPRESSION [None]
  - DRUG WITHDRAWAL SYNDROME [None]
  - IRRITABILITY [None]
  - OVARIAN DISORDER [None]
  - PSYCHIATRIC SYMPTOM [None]
  - WEIGHT DECREASED [None]
